FAERS Safety Report 18555257 (Version 1)
Quarter: 2020Q4

REPORT INFORMATION
  Report Type: Spontaneous
  Country: CN (occurrence: CN)
  Receive Date: 20201127
  Receipt Date: 20201127
  Transmission Date: 20210114
  Serious: Yes (Other)
  Sender: FDA-Public Use
  Company Number: CN-ASTRAZENECA-2020SF55103

PATIENT
  Age: 21915 Day
  Sex: Female
  Weight: 61 kg

DRUGS (3)
  1. AMOXICILLIN. [Suspect]
     Active Substance: AMOXICILLIN
     Indication: HELICOBACTER INFECTION
     Dosage: 1.0 G, TWICE A DAY
     Route: 048
     Dates: start: 20201114, end: 20201115
  2. METRONIDAZOLE. [Suspect]
     Active Substance: METRONIDAZOLE
     Indication: HELICOBACTER INFECTION
     Dosage: 0.4G, TWICE A DAY
     Route: 048
     Dates: start: 20201114, end: 20201115
  3. NEXIUM [Suspect]
     Active Substance: ESOMEPRAZOLE MAGNESIUM
     Indication: HELICOBACTER INFECTION
     Dosage: 20.0 MG TWICE A DAY
     Route: 048
     Dates: start: 20201114, end: 20201115

REACTIONS (2)
  - Rash [Recovering/Resolving]
  - Drug hypersensitivity [Recovering/Resolving]

NARRATIVE: CASE EVENT DATE: 20201115
